FAERS Safety Report 8979537 (Version 1)
Quarter: 2012Q4

REPORT INFORMATION
  Report Type: 
  Country: IN (occurrence: IN)
  Receive Date: 20121221
  Receipt Date: 20121221
  Transmission Date: 20130627
  Serious: Yes (Death, Hospitalization)
  Sender: FDA-Public Use
  Company Number: PHHY2012IN113623

PATIENT
  Age: 32 Year
  Sex: Female

DRUGS (2)
  1. CARBAMAZEPINE [Suspect]
     Dosage: 200 mg, BID
  2. VITAMIN B COMPLEX WITH C [Suspect]
     Route: 042

REACTIONS (14)
  - Septic shock [Fatal]
  - Toxic epidermal necrolysis [Unknown]
  - Skin lesion [Unknown]
  - Blister [Unknown]
  - Skin erosion [Unknown]
  - Skin exfoliation [Unknown]
  - Pyrexia [Unknown]
  - Cough [Unknown]
  - Mouth ulceration [Unknown]
  - Dysphagia [Unknown]
  - Oral discomfort [Unknown]
  - Ocular hyperaemia [Unknown]
  - Eye discharge [Unknown]
  - Eye pruritus [Unknown]
